FAERS Safety Report 6023870-2 (Version None)
Quarter: 2008Q4

REPORT INFORMATION
  Report Type: 
  Country: None (occurrence: None)
  Receive Date: 20081230
  Receipt Date: 20081219
  Transmission Date: 20090506
  Serious: Yes (Other)
  Sender: FDA-Public Use
  Company Number: BE-PFIZER INC-2008159687

PATIENT

DRUGS (2)
  1. MEDROL [Suspect]
  2. INSULIN [Concomitant]

REACTIONS (14)
  - ANOREXIA [None]
  - ARTHRALGIA [None]
  - CONTUSION [None]
  - DEPRESSION [None]
  - DIABETES MELLITUS [None]
  - HEADACHE [None]
  - HYPERHIDROSIS [None]
  - IMPAIRED HEALING [None]
  - INSOMNIA [None]
  - MYALGIA [None]
  - NAUSEA [None]
  - NONSPECIFIC REACTION [None]
  - SKIN IRRITATION [None]
  - WEIGHT INCREASED [None]
